FAERS Safety Report 13255536 (Version 1)
Quarter: 2017Q1

REPORT INFORMATION
  Report Type: Spontaneous
  Country: US (occurrence: US)
  Receive Date: 20170221
  Receipt Date: 20170221
  Transmission Date: 20170428
  Serious: Yes (Other)
  Sender: FDA-Public Use
  Company Number: PHHY2017US023723

PATIENT
  Age: 42 Year
  Sex: Male

DRUGS (6)
  1. VITAMIIN C [Concomitant]
     Active Substance: ASCORBIC ACID
     Indication: CHELATION THERAPY
     Route: 065
  2. CARBAMAZEPINE. [Concomitant]
     Active Substance: CARBAMAZEPINE
     Indication: BIPOLAR DISORDER
     Route: 065
  3. HALOPERIDOL. [Concomitant]
     Active Substance: HALOPERIDOL
     Indication: BIPOLAR DISORDER
     Route: 065
  4. ALPHA LIPOIC ACID [Concomitant]
     Active Substance: .ALPHA.-LIPOIC ACID
     Indication: CHELATION THERAPY
     Route: 065
  5. OXCARBAZEPINE. [Suspect]
     Active Substance: OXCARBAZEPINE
     Indication: BIPOLAR DISORDER
     Route: 065
  6. GARLIC. [Concomitant]
     Active Substance: GARLIC
     Indication: CHELATION THERAPY
     Route: 065

REACTIONS (2)
  - Product use issue [Unknown]
  - Withdrawal syndrome [Recovering/Resolving]
